FAERS Safety Report 24850804 (Version 2)
Quarter: 2025Q3

REPORT INFORMATION
  Report Type: Spontaneous
  Country: EU (occurrence: EU)
  Receive Date: 20250116
  Receipt Date: 20250803
  Transmission Date: 20251021
  Serious: Yes (Hospitalization, Other)
  Sender: ALEXION PHARMACEUTICALS
  Company Number: EU-SA-2024SA368371

PATIENT
  Age: 11 Week
  Weight: 6.4 kg

DRUGS (1)
  1. NIRSEVIMAB [Suspect]
     Active Substance: NIRSEVIMAB
     Indication: Immunisation
     Route: 065
     Dates: start: 20240919, end: 20240919

REACTIONS (10)
  - Respiratory syncytial virus bronchiolitis [Recovered/Resolved]
  - Cough [Recovered/Resolved]
  - Rhinorrhoea [Recovered/Resolved]
  - Nasal congestion [Recovered/Resolved]
  - Tachypnoea [Recovered/Resolved]
  - Use of accessory respiratory muscles [Recovered/Resolved]
  - Rales [Recovered/Resolved]
  - Oxygen saturation decreased [Recovered/Resolved]
  - Enteral nutrition [Recovered/Resolved]
  - Respiratory syncytial virus test positive [Unknown]

NARRATIVE: CASE EVENT DATE: 20241126
